FAERS Safety Report 9562285 (Version 1)
Quarter: 2013Q3

REPORT INFORMATION
  Report Type: Spontaneous
  Country: DK (occurrence: FR)
  Receive Date: 20130927
  Receipt Date: 20130927
  Transmission Date: 20140515
  Serious: Yes (Hospitalization)
  Sender: FDA-Public Use
  Company Number: FR-FRI-1000049272

PATIENT
  Age: 73 Year
  Sex: Male

DRUGS (3)
  1. ESCITALOPRAM [Suspect]
     Dosage: 1 DF
     Route: 048
  2. LEXOMIL ROCHE [Interacting]
     Dosage: 3 DF
     Route: 048
     Dates: end: 20130810
  3. HALDOL [Interacting]
     Dosage: 2 DF
     Route: 048

REACTIONS (3)
  - Orthostatic hypotension [Recovered/Resolved]
  - Dizziness [Recovered/Resolved]
  - Drug interaction [Recovered/Resolved]
